FAERS Safety Report 6931320-4 (Version None)
Quarter: 2010Q3

REPORT INFORMATION
  Report Type: 
  Country: None (occurrence: None)
  Receive Date: 20100818
  Receipt Date: 20100804
  Transmission Date: 20110219
  Serious: Yes (Other)
  Sender: FDA-Public Use
  Company Number: PHHY2010CO51737

PATIENT
  Sex: Female

DRUGS (1)
  1. ACLASTA [Suspect]
     Indication: OSTEOPOROSIS
     Dosage: 5MG/ 100 ML
     Dates: start: 20100730

REACTIONS (8)
  - ASTHENIA [None]
  - CHROMATURIA [None]
  - CONSTIPATION [None]
  - CYSTITIS [None]
  - HEADACHE [None]
  - MALAISE [None]
  - OCULAR HYPERAEMIA [None]
  - PRURITUS GENERALISED [None]
